FAERS Safety Report 24592979 (Version 1)
Quarter: 2024Q4

REPORT INFORMATION
  Report Type: Spontaneous
  Country: US (occurrence: US)
  Receive Date: 20241108
  Receipt Date: 20241108
  Transmission Date: 20250115
  Serious: Yes (Death)
  Sender: MYLAN
  Company Number: US-MYLANLABS-2024M1100284

PATIENT
  Age: 76 Year
  Sex: Female

DRUGS (1)
  1. GEODON [Interacting]
     Active Substance: ZIPRASIDONE HYDROCHLORIDE\ZIPRASIDONE MESYLATE
     Indication: Sleep disorder
     Dosage: UNK
     Route: 065

REACTIONS (8)
  - Death [Fatal]
  - Unresponsive to stimuli [Unknown]
  - Mood altered [Unknown]
  - Crying [Unknown]
  - Screaming [Unknown]
  - General physical health deterioration [Unknown]
  - Loss of personal independence in daily activities [Unknown]
  - Drug interaction [Unknown]
